FAERS Safety Report 8598166-5 (Version None)
Quarter: 2012Q3

REPORT INFORMATION
  Report Type: 
  Country: None (occurrence: None)
  Receive Date: 20120816
  Receipt Date: 20120814
  Transmission Date: 20120928
  Serious: Yes (Hospitalization)
  Sender: FDA-Public Use
  Company Number: PHHY2012FR070384

PATIENT
  Sex: Male

DRUGS (4)
  1. HYDROCORTISONE [Concomitant]
  2. THYROID HORMONES [Concomitant]
  3. HUMAN GROWTH HORMONE [Concomitant]
  4. TRILEPTAL [Suspect]
     Indication: GRAND MAL CONVULSION
     Dosage: 30 MG/KG PER DAY
     Route: 048
     Dates: start: 20120505, end: 20120723

REACTIONS (6)
  - GASTROENTERITIS [None]
  - HYPONATRAEMIA [None]
  - MULTI-ORGAN FAILURE [None]
  - CLONUS [None]
  - HYPOVOLAEMIC SHOCK [None]
  - STATUS EPILEPTICUS [None]
